FAERS Safety Report 8332888-6 (Version None)
Quarter: 2012Q2

REPORT INFORMATION
  Report Type: 
  Country: None (occurrence: None)
  Receive Date: 20120503
  Receipt Date: 20120425
  Transmission Date: 20120825
  Serious: Yes (Hospitalization)
  Sender: FDA-Public Use
  Company Number: JP-VERTEX PHARMACEUTICALS INC.-AE-2012-006051

PATIENT
  Age: 49 Year
  Sex: Male

DRUGS (7)
  1. REBETOL [Concomitant]
     Route: 048
     Dates: start: 20120309
  2. NORVASC [Concomitant]
     Route: 048
  3. REBETOL [Concomitant]
     Route: 048
     Dates: start: 20120217, end: 20120308
  4. PEG-INTRON [Concomitant]
     Indication: HEPATITIS C
     Route: 058
     Dates: start: 20120203
  5. REBETOL [Concomitant]
     Indication: HEPATITIS C
     Route: 048
     Dates: start: 20120203, end: 20120216
  6. OLMESARTAN MEDOXOMIL [Concomitant]
     Route: 048
  7. TELAVIC (TELAPREVIR) [Suspect]
     Indication: HEPATITIS C
     Route: 048
     Dates: start: 20120203

REACTIONS (1)
  - PANCREATITIS [None]
